FAERS Safety Report 7212518 (Version 2)
Quarter: 2012Q4

REPORT INFORMATION
  Report Type: Report from Study
  Country: US (occurrence: US)
  Receive Date: 20091211
  Receipt Date: 20121210
  Transmission Date: 20130627
  Serious: Yes (Other)
  Sender: FDA-Public Use
  Company Number: US-ROCHE-672701

PATIENT
  Sex: Female
  Weight: 88.5 kg

DRUGS (1)
  1. CAPECITABINE [Suspect]
     Indication: BREAST CANCER
     Dosage: Dose: 3 Tabs twice daily
     Route: 048
     Dates: start: 20081108, end: 20091207

REACTIONS (2)
  - Drug effect decreased [Unknown]
  - Breast cancer metastatic [Unknown]
